FAERS Safety Report 20579412 (Version 2)
Quarter: 2022Q2

REPORT INFORMATION
  Report Type: Spontaneous
  Country: US (occurrence: US)
  Receive Date: 20220310
  Receipt Date: 20220404
  Transmission Date: 20220721
  Serious: Yes (Other)
  Sender: FDA-Public Use
  Company Number: US-PFIZER INC-202200363887

PATIENT
  Age: 66 Year
  Sex: Female

DRUGS (3)
  1. IBRANCE [Suspect]
     Active Substance: PALBOCICLIB
     Indication: Breast cancer female
     Dosage: TK 1 C QD FOR 21 DAYS ON AND 7 DAYS OFF
     Route: 048
     Dates: start: 20220118, end: 20220213
  2. IBRANCE [Suspect]
     Active Substance: PALBOCICLIB
     Dosage: TK 1 C PO QD FOR 21 DAYS
     Route: 048
     Dates: start: 202202, end: 20220301
  3. IBRANCE [Suspect]
     Active Substance: PALBOCICLIB
     Dosage: TK 1 C PO QD FOR 21 DAYS
     Route: 048
     Dates: start: 202203

REACTIONS (2)
  - Rheumatoid arthritis [Unknown]
  - Device related infection [Unknown]

NARRATIVE: CASE EVENT DATE: 20220101
